FAERS Safety Report 17760119 (Version 1)
Quarter: 2020Q2

REPORT INFORMATION
  Report Type: Report from Study
  Country: ES (occurrence: ES)
  Receive Date: 20200508
  Receipt Date: 20200508
  Transmission Date: 20200714
  Serious: Yes (Hospitalization)
  Sender: FDA-Public Use
  Company Number: ES-ACCORD-180910

PATIENT
  Age: 86 Year
  Sex: Male

DRUGS (5)
  1. RIFAXIMIN. [Concomitant]
     Active Substance: RIFAXIMIN
     Indication: HEPATIC CIRRHOSIS
     Route: 048
     Dates: start: 20171127
  2. FUROSEMIDE. [Suspect]
     Active Substance: FUROSEMIDE
     Indication: ASCITES
     Route: 048
     Dates: start: 20171212, end: 20171218
  3. EMPORTAL [Concomitant]
     Indication: HEPATIC CIRRHOSIS
     Dosage: STRENGTH:10 GRAM, 20 SACHETS
     Route: 048
     Dates: start: 20170907
  4. ALLOPURINOL. [Concomitant]
     Active Substance: ALLOPURINOL
     Indication: GOUT
     Route: 048
     Dates: start: 20151024, end: 20171218
  5. ENALAPRIL [Interacting]
     Active Substance: ENALAPRIL
     Indication: HYPERTENSION
     Route: 048
     Dates: start: 20071024, end: 20171218

REACTIONS (2)
  - Acute kidney injury [Recovered/Resolved]
  - Drug interaction [Unknown]

NARRATIVE: CASE EVENT DATE: 20171212
